FAERS Safety Report 9226376 (Version 1)
Quarter: 2013Q2

REPORT INFORMATION
  Report Type: Report from Study
  Country: VE (occurrence: VE)
  Receive Date: 20130411
  Receipt Date: 20130411
  Transmission Date: 20140414
  Serious: Yes (Other)
  Sender: FDA-Public Use
  Company Number: VE-ABBOTT-13P-178-1073853-00

PATIENT
  Age: 53 Year
  Sex: Male
  Weight: 98 kg

DRUGS (1)
  1. HUMIRA [Suspect]
     Indication: PSORIASIS
     Route: 058
     Dates: start: 20100112, end: 201208

REACTIONS (1)
  - Tuberculin test positive [Recovering/Resolving]
